FAERS Safety Report 5195637-9 (Version None)
Quarter: 2007Q1

REPORT INFORMATION
  Report Type: 
  Country: None (occurrence: None)
  Receive Date: 20070102
  Receipt Date: 20061227
  Transmission Date: 20070707
  Serious: Yes (Other)
  Sender: FDA-Public Use
  Company Number: JP-AVENTIS-200614000JP

PATIENT
  Age: 57 Year
  Sex: Female

DRUGS (1)
  1. TAXOTERE [Suspect]
     Indication: BREAST CANCER
     Dosage: DOSE: 100 MG/BODY
     Route: 041

REACTIONS (5)
  - ARTHRALGIA [None]
  - DIPLEGIA [None]
  - IMMOBILE [None]
  - SPINAL CORD INFARCTION [None]
  - SPINAL CORD INJURY [None]
